FAERS Safety Report 18920448 (Version 1)
Quarter: 2021Q1

REPORT INFORMATION
  Report Type: Spontaneous
  Country: US (occurrence: US)
  Receive Date: 20210222
  Receipt Date: 20210222
  Transmission Date: 20210420
  Serious: No
  Sender: FDA-Public Use
  Company Number: US-B.I. PHARMACEUTICALS,INC./RIDGEFIELD-2021-BI-084592

PATIENT
  Age: 59 Year
  Sex: Male

DRUGS (1)
  1. OFEV [Suspect]
     Active Substance: NINTEDANIB
     Indication: INTERSTITIAL LUNG DISEASE
     Dosage: 150MG TWICE DAILY
     Dates: start: 20210210

REACTIONS (4)
  - Throat irritation [Unknown]
  - Nausea [Unknown]
  - Vomiting [Unknown]
  - Burning sensation [Unknown]

NARRATIVE: CASE EVENT DATE: 20210214
